FAERS Safety Report 10371105 (Version 1)
Quarter: 2014Q1

REPORT INFORMATION
  Report Type: Spontaneous
  Country: US (occurrence: None)
  Receive Date: 20140306
  Receipt Date: 20140306
  Transmission Date: 20141002
  Serious: Yes (Hospitalization, Other)
  Sender: FDA-Public Use
  Company Number: 163-21880-13073497

PATIENT
  Age: 75 Year
  Sex: Male

DRUGS (7)
  1. REVLIMID (LENALIDOMIDE) (25 MILLIGRAM, CAPSULES) [Suspect]
     Indication: PLASMA CELL MYELOMA
     Route: 048
     Dates: start: 201006
  2. CARDURA (DOXAZOSIN MESILATE) (TABLETS) [Concomitant]
  3. DEXAMETHASONE (TABLETS) [Concomitant]
  4. NORVASC (AMLODIPINE BESILATE) (TABLETS) [Concomitant]
  5. POTASSIUM CHLORIDE (SUSTAINED-RELEASE TABLET) [Concomitant]
  6. ATENOLOL (TABLETS) [Concomitant]
  7. GLYBURIDE (GLIBENCLAMIDE) (TABLETS) [Concomitant]

REACTIONS (1)
  - Cerebrovascular accident [None]
